FAERS Safety Report 5092324-2 (Version None)
Quarter: 2006Q3

REPORT INFORMATION
  Report Type: 
  Country: None (occurrence: None)
  Receive Date: 20060825
  Receipt Date: 20060808
  Transmission Date: 20061208
  Serious: Yes (Hospitalization)
  Sender: FDA-Public Use
  Company Number: US200608000795

PATIENT
  Age: 24 Year
  Sex: Male

DRUGS (5)
  1. CYMBALTA [Suspect]
     Indication: BIPOLAR I DISORDER
     Dosage: 30 MG, DAILY (1/D),
     Dates: start: 20050201
  2. AMBIEN [Concomitant]
  3. LORAZEPAM [Concomitant]
  4. PAXIL CR [Concomitant]
  5. DEPAKOTE - SLOW RELEASE (VALPROATE SEMISODIUM) [Concomitant]

REACTIONS (8)
  - ALCOHOL USE [None]
  - ANHEDONIA [None]
  - DELIRIUM [None]
  - EMOTIONAL DISTRESS [None]
  - FEELING ABNORMAL [None]
  - FEELING GUILTY [None]
  - INTENTIONAL OVERDOSE [None]
  - SUICIDE ATTEMPT [None]
